FAERS Safety Report 11213205 (Version 5)
Quarter: 2016Q4

REPORT INFORMATION
  Report Type: Spontaneous
  Country: US (occurrence: US)
  Receive Date: 20150623
  Receipt Date: 20161213
  Transmission Date: 20170206
  Serious: Yes (Other)
  Sender: FDA-Public Use
  Company Number: US-GLAXOSMITHKLINE-US2015087316

PATIENT
  Age: 88 Year
  Sex: Female

DRUGS (7)
  1. FLOVENT HFA [Suspect]
     Active Substance: FLUTICASONE PROPIONATE
     Dosage: 2 PUFF(S), BID
  2. FLOVENT HFA [Suspect]
     Active Substance: FLUTICASONE PROPIONATE
     Indication: ASTHMA
     Dosage: 1 DF, BID
  3. OXYGEN. [Concomitant]
     Active Substance: OXYGEN
  4. ALBUTEROL. [Concomitant]
     Active Substance: ALBUTEROL
  5. RANITIDINE. [Concomitant]
     Active Substance: RANITIDINE
  6. SEREVENT DISKUS [Suspect]
     Active Substance: SALMETEROL XINAFOATE
     Indication: DYSPNOEA
     Dosage: 1 PUFF(S), BID
  7. ATROVENT [Concomitant]
     Active Substance: IPRATROPIUM BROMIDE

REACTIONS (5)
  - Device use error [Not Recovered/Not Resolved]
  - Bedridden [Unknown]
  - Cough [Unknown]
  - Product quality issue [Unknown]
  - Product cleaning inadequate [Unknown]

NARRATIVE: CASE EVENT DATE: 20150917
